FAERS Safety Report 25275222 (Version 1)
Quarter: 2025Q2

REPORT INFORMATION
  Report Type: Other
  Country: IT (occurrence: IT)
  Receive Date: 20250506
  Receipt Date: 20250506
  Transmission Date: 20250716
  Serious: Yes (Other)
  Sender: B BRAUN
  Company Number: IT-B.Braun Medical Inc.-2176272

PATIENT
  Age: 77 Year
  Sex: Female

DRUGS (1)
  1. CEFTRIAXONE SODIUM [Suspect]
     Active Substance: CEFTRIAXONE SODIUM
     Indication: Respiratory symptom

REACTIONS (2)
  - Kounis syndrome [Unknown]
  - Medication error [Unknown]
